FAERS Safety Report 8858720 (Version 2)
Quarter: 2013Q1

REPORT INFORMATION
  Report Type: Spontaneous
  Country: US (occurrence: US)
  Receive Date: 20121024
  Receipt Date: 20130304
  Transmission Date: 20140127
  Serious: No
  Sender: FDA-Public Use
  Company Number: US-009507513-1210USA008773

PATIENT
  Age: 63 Year
  Sex: Male
  Weight: 77.55 kg

DRUGS (8)
  1. MK-0000 (111) [Suspect]
  2. MK-0000 (111) [Suspect]
  3. TELAPREVIR [Suspect]
     Dosage: 375 MG, TID
     Route: 048
     Dates: start: 20120905, end: 20121003
  4. PEGASYS [Suspect]
     Dosage: 180 MICROGRAM, QW
     Dates: start: 20120905, end: 20121015
  5. COPEGUS [Suspect]
     Dosage: 200 MG, BID
  6. ATENOLOL [Concomitant]
     Indication: BLOOD PRESSURE
     Dosage: UNK MG, UNK
     Route: 048
  7. DOXEPIN HYDROCHLORIDE [Concomitant]
     Indication: RASH
     Dosage: 100 MG, UNK
     Route: 048
     Dates: end: 20121015
  8. DOXEPIN HYDROCHLORIDE [Concomitant]
     Indication: PRURITUS

REACTIONS (4)
  - Respiratory disorder [Unknown]
  - Dyspnoea [Recovered/Resolved]
  - Chest pain [Recovered/Resolved]
  - Productive cough [Recovered/Resolved]
